FAERS Safety Report 5846564-2 (Version None)
Quarter: 2008Q3

REPORT INFORMATION
  Report Type: 
  Country: None (occurrence: None)
  Receive Date: 20080815
  Receipt Date: 20080808
  Transmission Date: 20090109
  Serious: Yes (Hospitalization)
  Sender: FDA-Public Use
  Company Number: GB-WYE-H04513208

PATIENT
  Age: 56 Year
  Sex: Female

DRUGS (8)
  1. PANTOPRAZOLE SODIUM [Suspect]
     Route: 048
  2. DICYCLOVERINE HYDROCHLORIDE/DOXYLAMINE SUCCINATE/PYRIDOXINE HYDROCHLOR [Concomitant]
     Dosage: UNKNOWN
  3. CO-DYDRAMOL [Concomitant]
     Dosage: UNKNOWN
  4. LEFLUNOMIDE [Concomitant]
     Dosage: UNKNOWN
  5. GAVISCON [Concomitant]
     Dosage: UNKNOWN
  6. PARACETAMOL [Concomitant]
     Dosage: UNKNOWN
  7. DICLOFENAC SODIUM [Concomitant]
     Dosage: UNKNOWN
  8. TRAMADOL HCL [Concomitant]
     Dosage: UNKNOWN

REACTIONS (1)
  - AUTOIMMUNE NEUTROPENIA [None]
